FAERS Safety Report 24912207 (Version 1)
Quarter: 2025Q1

REPORT INFORMATION
  Report Type: Spontaneous
  Country: US (occurrence: None)
  Receive Date: 20250131
  Receipt Date: 20250131
  Transmission Date: 20250408
  Serious: Yes (Life-Threatening, Hospitalization)
  Sender: FDA-CTU
  Company Number: None

PATIENT
  Age: 40 Year
  Sex: Female
  Weight: 51.75 kg

DRUGS (4)
  1. KETAMINE [Suspect]
     Active Substance: KETAMINE
     Indication: Preoperative care
     Route: 030
  2. KETAMINE [Suspect]
     Active Substance: KETAMINE
     Indication: Sedation
  3. Midazolam IV [Concomitant]
     Dates: start: 20250118, end: 20250118
  4. Olanzapine IM [Concomitant]
     Dates: start: 20250118, end: 20250118

REACTIONS (5)
  - Sneezing [None]
  - Secretion discharge [None]
  - Upper airway obstruction [None]
  - Apnoea [None]
  - Lack of concomitant drug effect [None]

NARRATIVE: CASE EVENT DATE: 20250118
